FAERS Safety Report 13960259 (Version 1)
Quarter: 2017Q3

REPORT INFORMATION
  Report Type: Spontaneous
  Country: US (occurrence: US)
  Receive Date: 20170912
  Receipt Date: 20170912
  Transmission Date: 20171128
  Serious: Yes (Hospitalization)
  Sender: FDA-Public Use
  Company Number: None

PATIENT
  Sex: Female
  Weight: 54 kg

DRUGS (2)
  1. NABUMETONE 500 MG [Suspect]
     Active Substance: NABUMETONE
     Indication: EPICONDYLITIS
     Dosage: ?          QUANTITY:1 TABLET(S);?
     Route: 048
     Dates: start: 20160811, end: 20160815
  2. VITAMINS [Concomitant]
     Active Substance: VITAMINS

REACTIONS (2)
  - Musculoskeletal stiffness [None]
  - Pyrexia [None]

NARRATIVE: CASE EVENT DATE: 20160815
